FAERS Safety Report 8740306 (Version 2)
Quarter: 2013Q4

REPORT INFORMATION
  Report Type: Spontaneous
  Country: US (occurrence: US)
  Receive Date: 20120823
  Receipt Date: 20131101
  Transmission Date: 20140711
  Serious: No
  Sender: FDA-Public Use
  Company Number: US-009507513-1208USA003269

PATIENT
  Age: 26 Year
  Sex: Female
  Weight: 55.78 kg

DRUGS (1)
  1. IMPLANON [Suspect]
     Indication: CONTRACEPTION
     Dosage: 1 ROD, EVERY 3 YEARS
     Route: 059
     Dates: start: 201102

REACTIONS (2)
  - Amenorrhoea [Recovered/Resolved]
  - Menometrorrhagia [Not Recovered/Not Resolved]
